FAERS Safety Report 10271917 (Version 2)
Quarter: 2014Q3

REPORT INFORMATION
  Report Type: Spontaneous
  Country: US (occurrence: US)
  Receive Date: 20140702
  Receipt Date: 20140702
  Transmission Date: 20150326
  Serious: Yes (Other)
  Sender: FDA-Public Use
  Company Number: ALCN2014US003602

PATIENT
  Age: 58 Year
  Sex: Female

DRUGS (2)
  1. SYSTANE ULTRA [Suspect]
     Active Substance: POLYETHYLENE GLYCOL 400\PROPYLENE GLYCOL
     Indication: CORNEAL DYSTROPHY
  2. SYSTANE ULTRA [Suspect]
     Active Substance: POLYETHYLENE GLYCOL 400\PROPYLENE GLYCOL
     Indication: PTERYGIUM
     Dosage: 1 GTT, QID
     Route: 047
     Dates: start: 20140611, end: 20140612

REACTIONS (6)
  - Eye allergy [Recovered/Resolved]
  - Eye pain [Recovered/Resolved]
  - Ulcerative keratitis [Recovered/Resolved]
  - Ocular hyperaemia [Recovered/Resolved]
  - Corneal defect [Recovered/Resolved]
  - Eye swelling [Recovered/Resolved]

NARRATIVE: CASE EVENT DATE: 20140612
